FAERS Safety Report 19592975 (Version 1)
Quarter: 2021Q3

REPORT INFORMATION
  Report Type: Spontaneous
  Country: US (occurrence: US)
  Receive Date: 20210722
  Receipt Date: 20210722
  Transmission Date: 20211014
  Serious: No
  Sender: FDA-Public Use
  Company Number: None

PATIENT
  Age: 42 Year
  Sex: Female
  Weight: 96.75 kg

DRUGS (1)
  1. NORETHINDRONE TABLETS USP, 0.35 MG [Suspect]
     Active Substance: NORETHINDRONE
     Indication: PELVIC PAIN
     Dosage: ?          QUANTITY:1 TABLET(S);?
     Route: 048
     Dates: start: 20210401, end: 20210531

REACTIONS (9)
  - Abdominal distension [None]
  - Nausea [None]
  - Neuralgia [None]
  - Endometriosis [None]
  - Dizziness [None]
  - Fatigue [None]
  - Flatulence [None]
  - Pelvic pain [None]
  - Inflammation [None]

NARRATIVE: CASE EVENT DATE: 20210421
